FAERS Safety Report 20703121 (Version 2)
Quarter: 2022Q2

REPORT INFORMATION
  Report Type: Spontaneous
  Country: US (occurrence: US)
  Receive Date: 20220413
  Receipt Date: 20220420
  Transmission Date: 20220721
  Serious: No
  Sender: FDA-Public Use
  Company Number: US-TEVA-2022-US-2018277

PATIENT
  Age: 56 Year
  Sex: Female

DRUGS (3)
  1. NEFAZODONE HYDROCHLORIDE [Suspect]
     Active Substance: NEFAZODONE HYDROCHLORIDE
     Indication: Anxiety
     Dosage: ONE TABLET IN THE MORNING AND ONE IN THE EVENING
     Dates: start: 202202
  2. NEFAZODONE HYDROCHLORIDE [Suspect]
     Active Substance: NEFAZODONE HYDROCHLORIDE
     Indication: Depression
     Dosage: 300 MILLIGRAM DAILY; 150 MG IN THE MORNING AND 150 MG IN THE EVENING
     Route: 065
  3. NEFAZODONE HYDROCHLORIDE [Suspect]
     Active Substance: NEFAZODONE HYDROCHLORIDE
     Route: 065

REACTIONS (4)
  - Tendonitis [Not Recovered/Not Resolved]
  - Generalised oedema [Not Recovered/Not Resolved]
  - Peripheral swelling [Not Recovered/Not Resolved]
  - Histone antibody positive [Unknown]

NARRATIVE: CASE EVENT DATE: 20220201
